FAERS Safety Report 4909002-X (Version None)
Quarter: 2006Q1

REPORT INFORMATION
  Report Type: 
  Country: None (occurrence: None)
  Receive Date: 20060213
  Receipt Date: 20060130
  Transmission Date: 20060701
  Serious: Yes (Disabling, Other)
  Sender: FDA-Public Use
  Company Number: HU-BOEHRINGER INGELHEIM PHARMACEUTICALS, INC.-2006-DE-00566GL

PATIENT
  Age: 52 Year
  Sex: Female

DRUGS (3)
  1. PRITOR PLUS [Suspect]
     Indication: HYPERTENSION
     Route: 048
  2. ACARBOSE [Concomitant]
  3. TELMISARTAN [Concomitant]

REACTIONS (6)
  - BLOOD PRESSURE INCREASED [None]
  - CONDITION AGGRAVATED [None]
  - DIPLOPIA [None]
  - HEADACHE [None]
  - HYPERTENSION [None]
  - INTRAOCULAR PRESSURE INCREASED [None]
